FAERS Safety Report 9478834 (Version 1)
Quarter: 2013Q3

REPORT INFORMATION
  Report Type: Report from Study
  Country: BR (occurrence: BR)
  Receive Date: 20130827
  Receipt Date: 20130827
  Transmission Date: 20140515
  Serious: Yes (Other)
  Sender: FDA-Public Use
  Company Number: BR-ABBOTT-13P-020-1136907-00

PATIENT
  Age: 31 Year
  Sex: Female
  Weight: 105 kg

DRUGS (11)
  1. HUMIRA [Suspect]
     Indication: ANKYLOSING SPONDYLITIS
     Route: 058
     Dates: start: 201303
  2. RIVOTRIL [Concomitant]
     Indication: DEPRESSION
     Route: 048
     Dates: start: 2009
  3. MIRTAZAPINE [Concomitant]
     Indication: DEPRESSION
     Route: 048
     Dates: start: 2009
  4. QUEROPAX [Concomitant]
     Indication: DEPRESSION
     Route: 048
     Dates: start: 2009
  5. DEPAKOTE [Concomitant]
     Indication: DEPRESSION
  6. UNKNOWN DRUG [Concomitant]
     Indication: DEPRESSION
  7. TECNOMET (METHOTREXATE) [Concomitant]
     Indication: ANKYLOSING SPONDYLITIS
  8. TORSILAX [Concomitant]
     Indication: ANKYLOSING SPONDYLITIS
     Dosage: DAILY DOSE: 4 OR 5 TABLETS DAILY
  9. TORSILAX [Concomitant]
  10. PREDSIM [Concomitant]
     Indication: ANKYLOSING SPONDYLITIS
  11. FOLIC ACID [Concomitant]
     Indication: ANKYLOSING SPONDYLITIS

REACTIONS (2)
  - Suicide attempt [Unknown]
  - Pain [Recovering/Resolving]
